FAERS Safety Report 7674918-0 (Version None)
Quarter: 2011Q3

REPORT INFORMATION
  Report Type: 
  Country: None (occurrence: None)
  Receive Date: 20110810
  Receipt Date: 20110728
  Transmission Date: 20111222
  Serious: Yes (Hospitalization, Other)
  Sender: FDA-Public Use
  Company Number: CA-ELI_LILLY_AND_COMPANY-CA201107007583

PATIENT
  Sex: Male

DRUGS (15)
  1. ZYPREXA [Suspect]
     Dosage: 5 MG, UNK
     Dates: start: 19980211, end: 20031114
  2. ZYPREXA [Suspect]
     Dosage: 7.5 MG, UNK
  3. FLUVOXAMINE MALEATE [Concomitant]
  4. ZYPREXA [Suspect]
     Dosage: 2.5 MG, UNK
  5. LITHIUM CARBONATE [Concomitant]
  6. RIDAZIN [Concomitant]
  7. VALPROATE SODIUM [Concomitant]
  8. ZOPICLONE [Concomitant]
  9. SERTRALINE HYDROCHLORIDE [Concomitant]
  10. RAMIPRIL [Concomitant]
  11. CELEXA [Concomitant]
  12. NOVO-PRANOL [Concomitant]
  13. ZYPREXA [Suspect]
     Dosage: 10 MG, UNK
  14. CLONAZEPAM [Concomitant]
  15. PINDOLOL [Concomitant]

REACTIONS (12)
  - PARAESTHESIA [None]
  - HYPERGLYCAEMIA [None]
  - ANAEMIA [None]
  - DIABETES MELLITUS [None]
  - DIABETIC KETOACIDOSIS [None]
  - HEPATITIS C VIRUS TEST POSITIVE [None]
  - DEMENTIA [None]
  - PERIPHERAL PULSE DECREASED [None]
  - HYPOTENSION [None]
  - CATARACT [None]
  - BLOOD CREATININE INCREASED [None]
  - HEPATIC ENCEPHALOPATHY [None]
